FAERS Safety Report 19661215 (Version 1)
Quarter: 2021Q3

REPORT INFORMATION
  Report Type: Spontaneous
  Country: IT (occurrence: IT)
  Receive Date: 20210805
  Receipt Date: 20210805
  Transmission Date: 20211014
  Serious: Yes (Other)
  Sender: FDA-Public Use
  Company Number: IT-PFIZER INC-202100947171

PATIENT
  Age: 49 Year
  Sex: Female

DRUGS (3)
  1. EFFEXOR XR [Suspect]
     Active Substance: VENLAFAXINE HYDROCHLORIDE
     Dosage: UNK
     Route: 048
  2. HALDOL [Suspect]
     Active Substance: HALOPERIDOL
     Dosage: UNK
     Route: 048
  3. TAVOR (LORAZEPAM) [Suspect]
     Active Substance: LORAZEPAM
     Dosage: UNK
     Route: 065

REACTIONS (2)
  - Dysarthria [Unknown]
  - Intentional self-injury [Unknown]
